FAERS Safety Report 8327851-5 (Version None)
Quarter: 2012Q2

REPORT INFORMATION
  Report Type: 
  Country: None (occurrence: None)
  Receive Date: 20120502
  Receipt Date: 20120418
  Transmission Date: 20120825
  Serious: Yes (Other)
  Sender: FDA-Public Use
  Company Number: CN-JNJFOC-20120413680

PATIENT
  Sex: Male
  Weight: 48 kg

DRUGS (3)
  1. FENTANYL [Suspect]
     Indication: NASOPHARYNGEAL CANCER
     Route: 062
     Dates: start: 20111013, end: 20111014
  2. FENTANYL [Suspect]
     Indication: PAIN
     Route: 062
     Dates: start: 20111013, end: 20111014
  3. FENTANYL [Suspect]
     Indication: METASTASES TO BONE
     Route: 062
     Dates: start: 20111013, end: 20111014

REACTIONS (2)
  - RESPIRATORY DEPRESSION [None]
  - SLOW RESPONSE TO STIMULI [None]
